FAERS Safety Report 9220014 (Version 1)
Quarter: 2013Q2

REPORT INFORMATION
  Report Type: Spontaneous
  Country: GB (occurrence: None)
  Receive Date: 20130405
  Receipt Date: 20130405
  Transmission Date: 20140414
  Serious: Yes (Other)
  Sender: FDA-Public Use
  Company Number: E2B_00000702

PATIENT
  Age: 78 Year
  Sex: Male
  Weight: 83 kg

DRUGS (7)
  1. SIMVASTATIN [Suspect]
     Indication: BLOOD CHOLESTEROL INCREASED
     Dates: start: 2005, end: 2008
  2. ROSUVASTATIN (UNKNOWN) [Suspect]
     Indication: BLOOD CHOLESTEROL INCREASED
     Dates: start: 2005, end: 2008
  3. ATORVASTATIN (UNKNOWN) [Suspect]
     Indication: BLOOD CHOLESTEROL INCREASED
     Dates: start: 2005, end: 2008
  4. PRAVASTATIN [Suspect]
     Indication: BLOOD CHOLESTEROL INCREASED
     Dates: start: 2005, end: 2008
  5. ATORVASTATIN CALCIUM [Suspect]
     Indication: BLOOD CHOLESTEROL INCREASED
     Dates: start: 2005, end: 2008
  6. FENOFIBRATE [Suspect]
     Indication: BLOOD CHOLESTEROL INCREASED
     Dates: start: 2008, end: 2008
  7. EZETIMIBE [Suspect]
     Indication: BLOOD CHOLESTEROL INCREASED
     Dates: start: 2005, end: 2008

REACTIONS (7)
  - Muscle fatigue [None]
  - Muscle atrophy [None]
  - Sleep disorder [None]
  - Fatigue [None]
  - Oedema mouth [None]
  - Constipation [None]
  - Pain [None]
